FAERS Safety Report 9165554 (Version 2)
Quarter: 2013Q1

REPORT INFORMATION
  Report Type: Spontaneous
  Country: MX (occurrence: None)
  Receive Date: 20130212
  Receipt Date: 20130225
  Transmission Date: 20140127
  Serious: Yes (Hospitalization, Other)
  Sender: FDA-Public Use
  Company Number: AEMEX201300053

PATIENT
  Age: 6 Year
  Sex: Male

DRUGS (2)
  1. IVIG (IMMUNE GLOBULIN INTRAVENOUS (HUMAN)) [Suspect]
     Indication: KAWASAKI^S DISEASE
  2. ASPIRIN [Concomitant]

REACTIONS (3)
  - Skin exfoliation [None]
  - VIth nerve paralysis [None]
  - Diplopia [None]
